FAERS Safety Report 5015182-0 (Version None)
Quarter: 2006Q2

REPORT INFORMATION
  Report Type: 
  Country: None (occurrence: None)
  Receive Date: 20060425
  Receipt Date: 20060210
  Transmission Date: 20061013
  Serious: No
  Sender: FDA-Public Use
  Company Number: 222041

PATIENT

DRUGS (2)
  1. XOLAIR [Suspect]
  2. PRED (PREDNISONE) [Concomitant]

REACTIONS (2)
  - BLOOD IMMUNOGLOBULIN E INCREASED [None]
  - WHEEZING [None]
